FAERS Safety Report 10932605 (Version 1)
Quarter: 2015Q1

REPORT INFORMATION
  Report Type: Spontaneous
  Country: US (occurrence: None)
  Receive Date: 20150318
  Receipt Date: 20150318
  Transmission Date: 20150721
  Serious: Yes (Other)
  Sender: FDA-Public Use
  Company Number: US-ZYDUS-007024

PATIENT
  Age: 81 Year
  Sex: Female

DRUGS (4)
  1. AMLODIPINE [Suspect]
     Active Substance: AMLODIPINE BESYLATE
  2. HYDROCHLOROTHIAZIDE (HYDROCHLOROTHIAZIDE) [Suspect]
     Active Substance: HYDROCHLOROTHIAZIDE
  3. VALSARTAN (VALSARTAN) [Suspect]
     Active Substance: VALSARTAN
  4. ATORVASTATIN (ATORVASTATIN) [Suspect]
     Active Substance: ATORVASTATIN

REACTIONS (1)
  - Subacute cutaneous lupus erythematosus [None]
